FAERS Safety Report 8335193-7 (Version None)
Quarter: 2012Q2

REPORT INFORMATION
  Report Type: 
  Country: None (occurrence: None)
  Receive Date: 20120503
  Receipt Date: 20120420
  Transmission Date: 20120825
  Serious: Yes (Hospitalization, Disabling, Other)
  Sender: FDA-Public Use
  Company Number: US-MYLANLABS-2009AL000589

PATIENT
  Age: 81 Year
  Sex: Female
  Weight: 71.22 kg

DRUGS (30)
  1. DIGOXIN [Suspect]
     Indication: ATRIAL FIBRILLATION
     Route: 048
     Dates: start: 20060126, end: 20080501
  2. XANAX [Concomitant]
  3. CARDIZEM [Concomitant]
  4. ALPRAZOLAM [Concomitant]
  5. FOLTX [Concomitant]
  6. CARDIZEM [Concomitant]
  7. ULTRACET [Concomitant]
  8. HYDRALAZINE HCL [Concomitant]
  9. PLAVIX [Concomitant]
  10. ASPIRIN [Concomitant]
  11. LISINOPRIL [Concomitant]
  12. ESTRADERM [Concomitant]
     Route: 062
  13. PREVACID [Concomitant]
  14. BETAPACE [Concomitant]
  15. ANTIBIOTICS [Concomitant]
     Route: 042
  16. REGLAN [Concomitant]
  17. TOPROL-XL [Concomitant]
  18. VERAPAMIL [Concomitant]
  19. LESCOL [Concomitant]
     Route: 048
  20. NITROGLYCERIN [Concomitant]
  21. FOLIC ACID [Concomitant]
  22. LASIX [Concomitant]
  23. TENORMIN [Concomitant]
  24. METOCLOPRAMIDE [Concomitant]
  25. XANAX [Concomitant]
  26. POTASSIUM CHLORIDE [Concomitant]
     Route: 048
  27. HYDRALAZINE HCL [Concomitant]
  28. POTASSIUM CHLORIDE [Concomitant]
  29. COREG [Concomitant]
  30. LASIX [Concomitant]
     Route: 042

REACTIONS (79)
  - VOMITING [None]
  - COUGH [None]
  - CONFUSIONAL STATE [None]
  - ATRIAL FIBRILLATION [None]
  - TACHYCARDIA [None]
  - HEADACHE [None]
  - ABDOMINAL DISCOMFORT [None]
  - PALLOR [None]
  - SCAR [None]
  - SPINAL OSTEOARTHRITIS [None]
  - ECONOMIC PROBLEM [None]
  - FEAR [None]
  - LOSS OF EMPLOYMENT [None]
  - HYPOKALAEMIA [None]
  - DYSARTHRIA [None]
  - UNRESPONSIVE TO STIMULI [None]
  - PNEUMONIA [None]
  - ALTERED STATE OF CONSCIOUSNESS [None]
  - DRUG LEVEL ABOVE THERAPEUTIC [None]
  - AORTIC ARTERIOSCLEROSIS [None]
  - INSPIRATORY CAPACITY DECREASED [None]
  - EMOTIONAL DISTRESS [None]
  - TOXICITY TO VARIOUS AGENTS [None]
  - DYSPNOEA [None]
  - AMNESIA [None]
  - TREATMENT NONCOMPLIANCE [None]
  - URINARY TRACT INFECTION [None]
  - ELECTROCARDIOGRAM ABNORMAL [None]
  - CARDIAC STRESS TEST ABNORMAL [None]
  - LEFT VENTRICULAR HYPERTROPHY [None]
  - DILATATION VENTRICULAR [None]
  - WHEEZING [None]
  - LABORATORY TEST ABNORMAL [None]
  - ASTHENIA [None]
  - ACTIVITIES OF DAILY LIVING IMPAIRED [None]
  - FALL [None]
  - HEAD INJURY [None]
  - ACCIDENTAL POISONING [None]
  - FATIGUE [None]
  - VISION BLURRED [None]
  - LUNG INFILTRATION [None]
  - DRUG HYPERSENSITIVITY [None]
  - ABDOMINAL PAIN UPPER [None]
  - HYPOPERFUSION [None]
  - ARRHYTHMIA [None]
  - DEAFNESS [None]
  - CYANOSIS [None]
  - OSTEOARTHRITIS [None]
  - GASTRITIS [None]
  - LEFT ATRIAL DILATATION [None]
  - DEHYDRATION [None]
  - FEELING ABNORMAL [None]
  - HEART SOUNDS ABNORMAL [None]
  - ILL-DEFINED DISORDER [None]
  - CARDIAC FAILURE CONGESTIVE [None]
  - BRONCHOSPASM [None]
  - INCORRECT DOSE ADMINISTERED [None]
  - MEDICAL DIET [None]
  - HEART RATE INCREASED [None]
  - BREATH SOUNDS ABNORMAL [None]
  - INJURY [None]
  - NAUSEA [None]
  - PLEURAL EFFUSION [None]
  - DISEASE RECURRENCE [None]
  - EATING DISORDER [None]
  - GAIT DISTURBANCE [None]
  - GASTROOESOPHAGEAL REFLUX DISEASE [None]
  - BRAIN SCAN ABNORMAL [None]
  - ANXIETY [None]
  - SOCIAL AVOIDANT BEHAVIOUR [None]
  - MUSCULAR WEAKNESS [None]
  - LOBAR PNEUMONIA [None]
  - CHEST PAIN [None]
  - SYNCOPE [None]
  - HEART INJURY [None]
  - DIASTOLIC DYSFUNCTION [None]
  - ESSENTIAL HYPERTENSION [None]
  - CARDIAC VALVE DISEASE [None]
  - CHEST X-RAY ABNORMAL [None]
